FAERS Safety Report 22340704 (Version 2)
Quarter: 2023Q2

REPORT INFORMATION
  Report Type: Spontaneous
  Country: CN (occurrence: CN)
  Receive Date: 20230518
  Receipt Date: 20230529
  Transmission Date: 20230722
  Serious: Yes (Death, Hospitalization, Other)
  Sender: FDA-Public Use
  Company Number: CN-TEVA-2023-CN-2887854

PATIENT
  Age: 32 Year
  Sex: Female

DRUGS (9)
  1. CYCLOSPORINE [Suspect]
     Active Substance: CYCLOSPORINE
     Indication: Immune thrombocytopenia
     Dosage: INITIAL DOSE NOT STATED
     Route: 065
     Dates: start: 202101, end: 202103
  2. CYCLOSPORINE [Suspect]
     Active Substance: CYCLOSPORINE
     Dosage: 300 MILLIGRAM DAILY; 150 MG TWICE A DAY
     Route: 048
     Dates: start: 20210906
  3. PREDNISONE [Suspect]
     Active Substance: PREDNISONE
     Indication: Immune thrombocytopenia
     Dosage: 20 MG
     Route: 065
     Dates: start: 2020
  4. METHYLPREDNISOLONE [Suspect]
     Active Substance: METHYLPREDNISOLONE
     Indication: Immune thrombocytopenia
     Dosage: 24MG
     Route: 065
     Dates: start: 202101, end: 202103
  5. METHYLPREDNISOLONE [Suspect]
     Active Substance: METHYLPREDNISOLONE
     Dosage: 80 MILLIGRAM DAILY; ONCE A DAY
     Route: 065
     Dates: start: 20210422
  6. METHYLPREDNISOLONE [Suspect]
     Active Substance: METHYLPREDNISOLONE
     Dosage: 16 MILLIGRAM DAILY; ONCE A DAY
     Route: 065
     Dates: start: 2021
  7. IMMUNE GLOBULIN NOS [Suspect]
     Active Substance: IMMUNE GLOBULIN NOS
     Indication: Immune thrombocytopenia
     Dosage: 0.4 G/KG
     Route: 065
     Dates: start: 20210422
  8. ELTROMBOPAG [Suspect]
     Active Substance: ELTROMBOPAG
     Indication: Immune thrombocytopenia
     Dosage: 25 MILLIGRAM DAILY; ONCE A DAY
     Route: 065
     Dates: start: 20210823
  9. NORETHINDRONE [Suspect]
     Active Substance: NORETHINDRONE
     Indication: Vaginal haemorrhage
     Dosage: 15 GRAM DAILY; ONCE EVERY 8 HOURS
     Route: 065
     Dates: start: 20210906

REACTIONS (3)
  - Superior sagittal sinus thrombosis [Fatal]
  - Intentional product misuse [Unknown]
  - Drug ineffective [Unknown]

NARRATIVE: CASE EVENT DATE: 20210101
